FAERS Safety Report 5927422-1 (Version None)
Quarter: 2008Q4

REPORT INFORMATION
  Report Type: 
  Country: None (occurrence: None)
  Receive Date: 20081022
  Receipt Date: 20081022
  Transmission Date: 20090506
  Serious: Yes (Other)
  Sender: FDA-Public Use
  Company Number: None

PATIENT
  Age: 58 Year
  Sex: Male
  Weight: 89.8122 kg

DRUGS (3)
  1. SIMVASTATIN [Suspect]
     Indication: HYPERLIPIDAEMIA
     Dosage: 20MG ONCE DAILY PO
     Route: 048
     Dates: start: 20080808
  2. ASPIRIN [Concomitant]
  3. FISH OIL [Concomitant]

REACTIONS (3)
  - MUSCLE HAEMORRHAGE [None]
  - MUSCLE SWELLING [None]
  - PAIN IN EXTREMITY [None]
